FAERS Safety Report 6092013-1 (Version None)
Quarter: 2009Q1

REPORT INFORMATION
  Report Type: 
  Country: None (occurrence: None)
  Receive Date: 20090225
  Receipt Date: 20081229
  Transmission Date: 20090719
  Serious: No
  Sender: FDA-Public Use
  Company Number: A0761765A

PATIENT
  Sex: Female

DRUGS (1)
  1. VALTREX [Suspect]
     Indication: CHRONIC FATIGUE SYNDROME
     Dosage: 6G PER DAY
     Route: 048
     Dates: start: 20060101

REACTIONS (2)
  - CHROMATURIA [None]
  - RENAL INJURY [None]
